FAERS Safety Report 19059086 (Version 1)
Quarter: 2021Q1

REPORT INFORMATION
  Report Type: Report from Study
  Country: US (occurrence: US)
  Receive Date: 20210325
  Receipt Date: 20210325
  Transmission Date: 20210420
  Serious: Yes (Other)
  Sender: FDA-Public Use
  Company Number: US-JNJFOC-20210339252

PATIENT
  Sex: Male

DRUGS (2)
  1. ERLEADA [Suspect]
     Active Substance: APALUTAMIDE
     Indication: PROSTATE CANCER
     Route: 048
  2. ZYTIGA [Suspect]
     Active Substance: ABIRATERONE ACETATE
     Indication: PROSTATE CANCER
     Route: 048

REACTIONS (8)
  - Supraventricular tachycardia [Unknown]
  - Cardiac failure [Unknown]
  - Hypertension [Unknown]
  - Cardiogenic shock [Unknown]
  - Myocardial infarction [Unknown]
  - Ventricular tachycardia [Unknown]
  - Myocardial ischaemia [Unknown]
  - Atrial fibrillation [Unknown]
